FAERS Safety Report 9732634 (Version 1)
Quarter: 2013Q4

REPORT INFORMATION
  Report Type: Spontaneous
  Country: US (occurrence: US)
  Receive Date: 20131204
  Receipt Date: 20131204
  Transmission Date: 20140711
  Serious: No
  Sender: FDA-Public Use
  Company Number: US-GILEAD-2013-0088920

PATIENT
  Sex: Female

DRUGS (10)
  1. LETAIRIS [Suspect]
     Indication: PRODUCT USED FOR UNKNOWN INDICATION
     Dosage: 10 MG, QD
     Dates: start: 20130322, end: 20131121
  2. LOVENOX [Concomitant]
  3. URSODIOL [Concomitant]
  4. ALBUTEROL                          /00139501/ [Concomitant]
  5. ADVAIR [Concomitant]
  6. NEXIUM                             /01479302/ [Concomitant]
  7. LASIX                              /00032601/ [Concomitant]
  8. WARFARIN [Concomitant]
  9. REMODULIN [Concomitant]
  10. ZETIA [Concomitant]

REACTIONS (1)
  - Localised oedema [Recovering/Resolving]
